FAERS Safety Report 10528526 (Version 1)
Quarter: 2014Q4

REPORT INFORMATION
  Report Type: Spontaneous
  Country: US (occurrence: None)
  Receive Date: 20141017
  Receipt Date: 20141017
  Transmission Date: 20150528
  Serious: Yes (Other)
  Sender: FDA-Public Use
  Company Number: None

PATIENT
  Age: 57 Year
  Sex: Male
  Weight: 80.74 kg

DRUGS (1)
  1. KEPPRA XR [Suspect]
     Active Substance: LEVETIRACETAM
     Indication: EPILEPSY
     Dosage: 2 X 1    1000MG A DAY
     Route: 048

REACTIONS (6)
  - Erythema of eyelid [None]
  - Heart rate irregular [None]
  - Rhinorrhoea [None]
  - Eye irritation [None]
  - Chest pain [None]
  - Pollakiuria [None]

NARRATIVE: CASE EVENT DATE: 20140421
